FAERS Safety Report 19350267 (Version 1)
Quarter: 2021Q2

REPORT INFORMATION
  Report Type: Spontaneous
  Country: US (occurrence: US)
  Receive Date: 20210528
  Receipt Date: 20210528
  Transmission Date: 20210717
  Serious: Yes (Other)
  Sender: FDA-Public Use
  Company Number: None

PATIENT
  Age: 52 Year
  Sex: Female
  Weight: 67.5 kg

DRUGS (4)
  1. MULTIVITAMIN [Concomitant]
     Active Substance: VITAMINS
  2. BIOTIN [Concomitant]
     Active Substance: BIOTIN
  3. VITAMIN D [Concomitant]
     Active Substance: VITAMIN D NOS
  4. BIOTE (ESTROGENS\TESTOSTERONE) [Suspect]
     Active Substance: ESTROGENS\TESTOSTERONE
     Indication: MENOPAUSE
     Dates: start: 20201009, end: 20210205

REACTIONS (5)
  - Blood testosterone increased [None]
  - Haemorrhage [None]
  - Androgenetic alopecia [None]
  - Alopecia [None]
  - Abdominal distension [None]

NARRATIVE: CASE EVENT DATE: 20210425
